FAERS Safety Report 17173659 (Version 1)
Quarter: 2019Q4

REPORT INFORMATION
  Report Type: Spontaneous
  Country: US (occurrence: US)
  Receive Date: 20191219
  Receipt Date: 20191219
  Transmission Date: 20200122
  Serious: No
  Sender: FDA-Public Use
  Company Number: US-SUPERNUS PHARMACEUTICALS, INC.-2019SUP00410

PATIENT
  Age: 63 Year
  Sex: Female
  Weight: 81.63 kg

DRUGS (5)
  1. OXTELLAR XR [Suspect]
     Active Substance: OXCARBAZEPINE
     Indication: TRIGEMINAL NEURALGIA
     Dosage: UNK
     Route: 048
     Dates: start: 2019, end: 2019
  2. OXTELLAR XR [Suspect]
     Active Substance: OXCARBAZEPINE
     Dosage: 600 MG, 1X/DAY AT BEDTIME
     Route: 048
     Dates: start: 2019
  3. OXTELLAR XR [Suspect]
     Active Substance: OXCARBAZEPINE
     Indication: TRIGEMINAL NEURALGIA
     Dosage: 600 MG, 1X/DAY AT NIGHT WHEN SHE WENT TO BED
     Route: 048
     Dates: start: 2019, end: 2019
  4. OXTELLAR XR [Suspect]
     Active Substance: OXCARBAZEPINE
     Dosage: 300 MG, 3X/DAY
     Route: 048
     Dates: start: 2019, end: 2019
  5. OXTELLAR XR [Suspect]
     Active Substance: OXCARBAZEPINE
     Dosage: 1200 MG, 1X/DAY AT NIGHT
     Route: 048
     Dates: start: 2019, end: 2019

REACTIONS (9)
  - Ill-defined disorder [Recovered/Resolved]
  - Diarrhoea [Recovered/Resolved]
  - Pain [Recovered/Resolved]
  - Retching [Recovered/Resolved]
  - Product dose omission [Not Recovered/Not Resolved]
  - Vomiting [Recovered/Resolved]
  - Product dispensing error [Not Recovered/Not Resolved]
  - Product use in unapproved indication [Not Recovered/Not Resolved]
  - Malaise [Recovered/Resolved]

NARRATIVE: CASE EVENT DATE: 2019
